FAERS Safety Report 7384804-1 (Version None)
Quarter: 2011Q1

REPORT INFORMATION
  Report Type: 
  Country: None (occurrence: None)
  Receive Date: 20110330
  Receipt Date: 20110314
  Transmission Date: 20110831
  Serious: Yes (Hospitalization, Other)
  Sender: FDA-Public Use
  Company Number: US-BAYER-201038227NA

PATIENT
  Sex: Female
  Weight: 54.422 kg

DRUGS (6)
  1. YASMIN [Suspect]
     Dosage: UNK
     Dates: start: 20050909, end: 20060218
  2. YAZ [Suspect]
     Dosage: UNK
     Dates: start: 20090201, end: 20091001
  3. YASMIN [Suspect]
     Dosage: UNK
  4. YAZ [Suspect]
     Indication: PRODUCT USED FOR UNKNOWN INDICATION
     Dosage: UNK UNK, QD
     Route: 048
     Dates: start: 20060827, end: 20081018
  5. YAZ [Suspect]
     Dosage: UNK
     Dates: start: 20100315, end: 20100728
  6. YASMIN [Suspect]
     Indication: ACNE
     Dosage: UNK UNK, QD
     Route: 048
     Dates: start: 20040910, end: 20050520

REACTIONS (6)
  - ABDOMINAL PAIN [None]
  - PANIC ATTACK [None]
  - BILIARY DYSKINESIA [None]
  - DYSGEUSIA [None]
  - NAUSEA [None]
  - DIZZINESS [None]
